FAERS Safety Report 8110425-9 (Version None)
Quarter: 2012Q1

REPORT INFORMATION
  Report Type: 
  Country: None (occurrence: None)
  Receive Date: 20120202
  Receipt Date: 20120123
  Transmission Date: 20120608
  Serious: Yes (Hospitalization)
  Sender: FDA-Public Use
  Company Number: JP-ALLERGAN-1201250US

PATIENT
  Age: 43 Year
  Sex: Male

DRUGS (1)
  1. LUMIGAN [Suspect]
     Indication: NORMAL TENSION GLAUCOMA
     Dosage: 2 GTT, QHS
     Route: 047
     Dates: start: 20110820, end: 20110822

REACTIONS (2)
  - OCULAR HYPERAEMIA [None]
  - EYE PAIN [None]
